FAERS Safety Report 13479469 (Version 1)
Quarter: 2017Q2

REPORT INFORMATION
  Report Type: Spontaneous
  Country: FR (occurrence: FR)
  Receive Date: 20170425
  Receipt Date: 20170425
  Transmission Date: 20170830
  Serious: Yes (Hospitalization, Other)
  Sender: FDA-Public Use
  Company Number: FR-BAXTER-2017BAX017034

PATIENT
  Age: 25 Year
  Sex: Male

DRUGS (43)
  1. CELLTOP 100 MG/5 ML, SOLUTION INJECTABLE POUR PERFUSION [Suspect]
     Active Substance: ETOPOSIDE
     Indication: TESTIS CANCER
     Dosage: 3 COURSES OF BEP
     Route: 065
  2. IFOSFAMIDE EG [Suspect]
     Active Substance: IFOSFAMIDE
     Dosage: C1D4: OVER 3 HOURS
     Route: 042
     Dates: start: 20160924, end: 20160924
  3. ONDANSETRON ACCORD [Suspect]
     Active Substance: ONDANSETRON
     Indication: PREMEDICATION
     Route: 042
     Dates: start: 20160924, end: 20160924
  4. OXYNORM [Suspect]
     Active Substance: OXYCODONE HYDROCHLORIDE
     Indication: PRODUCT USED FOR UNKNOWN INDICATION
     Route: 065
     Dates: end: 20160930
  5. PLITICAN [Concomitant]
     Active Substance: ALIZAPRIDE HYDROCHLORIDE
     Indication: PRODUCT USED FOR UNKNOWN INDICATION
     Route: 065
     Dates: start: 20161007, end: 20161011
  6. DIFFU K [Concomitant]
     Active Substance: POTASSIUM CHLORIDE
     Indication: PRODUCT USED FOR UNKNOWN INDICATION
     Route: 065
     Dates: start: 20161005, end: 20161011
  7. HOLOXAN 2000 MG, POUDRE POUR USAGE PARENT?RAL [Suspect]
     Active Substance: IFOSFAMIDE
     Indication: TESTICULAR CANCER METASTATIC
     Dosage: VIP COURSE 4
     Route: 065
     Dates: start: 20150811
  8. IFOSFAMIDE EG [Suspect]
     Active Substance: IFOSFAMIDE
     Indication: TESTICULAR GERM CELL CANCER METASTATIC
     Dosage: C1D2: OVER 3 HOURS
     Route: 042
     Dates: start: 20160922, end: 20160922
  9. IFOSFAMIDE EG [Suspect]
     Active Substance: IFOSFAMIDE
     Dosage: C1D3: OVER 3 HOURS
     Route: 042
     Dates: start: 20160923, end: 20160923
  10. CISPLATIN. [Suspect]
     Active Substance: CISPLATIN
     Indication: TESTICULAR CANCER METASTATIC
     Dosage: VIP COURSE 4
     Route: 065
     Dates: start: 20150811
  11. ONDANSETRON [Concomitant]
     Active Substance: ONDANSETRON
     Indication: PRODUCT USED FOR UNKNOWN INDICATION
     Route: 065
     Dates: start: 20161006, end: 20161009
  12. IFOSFAMIDE EG [Suspect]
     Active Substance: IFOSFAMIDE
     Dosage: C2D4: COURSE 2
     Route: 042
     Dates: start: 20161008, end: 20161008
  13. METHYLPREDNISOLONE MYLAN [Suspect]
     Active Substance: METHYLPREDNISOLONE
     Indication: PRODUCT USED FOR UNKNOWN INDICATION
     Route: 042
     Dates: start: 20160921, end: 20160930
  14. BIONOLYTE G5 [Suspect]
     Active Substance: DEXTROSE\POTASSIUM CHLORIDE\SODIUM CHLORIDE
     Indication: FLUID REPLACEMENT
     Dosage: EVERY 12 HOURS DAILY
     Route: 065
     Dates: start: 20160916, end: 20160926
  15. PACKED RED BLOOD CELLS [Concomitant]
     Active Substance: HUMAN RED BLOOD CELL
     Indication: PRODUCT USED FOR UNKNOWN INDICATION
     Dosage: 2 UNITS
     Route: 065
     Dates: start: 20161005
  16. CHLORURE DE SODIUM 0.9% VIAFLO, SOLUTION POUR PERFUSION [Suspect]
     Active Substance: SODIUM CHLORIDE
     Indication: FLUID REPLACEMENT
     Dosage: EVERY 12 HOURS EVERY DAY
     Route: 065
     Dates: start: 20160917, end: 20160927
  17. HOLOXAN 2000 MG, POUDRE POUR USAGE PARENT?RAL [Suspect]
     Active Substance: IFOSFAMIDE
     Indication: TESTICULAR MALIGNANT TERATOMA
     Dosage: VIP COURSE 2
     Route: 065
     Dates: start: 20150616
  18. HOLOXAN 2000 MG, POUDRE POUR USAGE PARENT?RAL [Suspect]
     Active Substance: IFOSFAMIDE
     Indication: TESTIS CANCER
     Dosage: VIP COURSE 3
     Route: 065
     Dates: start: 20150714
  19. BLEOMYCIN [Suspect]
     Active Substance: BLEOMYCIN SULFATE
     Indication: TESTIS CANCER
     Dosage: 2 COURSES OF BEP
     Route: 065
  20. CELLTOP 100 MG/5 ML, SOLUTION INJECTABLE POUR PERFUSION [Suspect]
     Active Substance: ETOPOSIDE
     Dosage: VIP COURSE 5
     Route: 065
     Dates: start: 20150811
  21. PACLITAXEL KABI [Suspect]
     Active Substance: PACLITAXEL
     Indication: TESTICULAR GERM CELL CANCER METASTATIC
     Dosage: C1D1: OVER 3 HOURS.
     Route: 042
     Dates: start: 20160921, end: 20160921
  22. LOVENOX [Suspect]
     Active Substance: ENOXAPARIN SODIUM
     Indication: PRODUCT USED FOR UNKNOWN INDICATION
     Route: 065
     Dates: end: 20160930
  23. DOLIPRANE [Suspect]
     Active Substance: ACETAMINOPHEN
     Indication: PRODUCT USED FOR UNKNOWN INDICATION
     Route: 065
     Dates: end: 20160930
  24. LOW MOLECULAR WEIGHT HEPARIN [Suspect]
     Active Substance: UNSPECIFIED INGREDIENT
     Indication: PRODUCT USED FOR UNKNOWN INDICATION
     Route: 065
     Dates: start: 20160920
  25. TERBUTALINE [Suspect]
     Active Substance: TERBUTALINE
     Indication: DYSPNOEA
     Route: 065
     Dates: start: 20160923
  26. LYSOPAINE [Concomitant]
     Active Substance: CETYLPYRIDINIUM CHLORIDE\LYSOZYME HYDROCHLORIDE
     Indication: PRODUCT USED FOR UNKNOWN INDICATION
     Route: 065
  27. CISPLATIN. [Suspect]
     Active Substance: CISPLATIN
     Indication: TESTIS CANCER
     Dosage: VIP COURSE 3
     Route: 065
     Dates: start: 20150714
  28. UROMITEXAN 5 G/50 ML, SOLUTION INJECTABLE POUR PERFUSION EN FLACON [Suspect]
     Active Substance: MESNA
     Indication: PREMEDICATION
     Route: 042
     Dates: start: 20160922, end: 20160924
  29. CELLTOP 100 MG/5 ML, SOLUTION INJECTABLE POUR PERFUSION [Suspect]
     Active Substance: ETOPOSIDE
     Indication: TESTICULAR CANCER METASTATIC
     Dosage: VIP COURSE 3
     Route: 065
     Dates: start: 20150714
  30. IFOSFAMIDE EG [Suspect]
     Active Substance: IFOSFAMIDE
     Dosage: C2D2: COURSE 2
     Route: 042
     Dates: start: 20161006, end: 20161006
  31. HOLOXAN 2000 MG, POUDRE POUR USAGE PARENT?RAL [Suspect]
     Active Substance: IFOSFAMIDE
     Indication: METASTASES TO LUNG
     Dosage: VIP COURSE 1
     Route: 065
     Dates: start: 20150515
  32. IFOSFAMIDE EG [Suspect]
     Active Substance: IFOSFAMIDE
     Dosage: C2D3: COURSE 2
     Route: 042
     Dates: start: 20161007, end: 20161007
  33. PACLITAXEL KABI [Suspect]
     Active Substance: PACLITAXEL
     Dosage: C2D1: OVER 3 HOURS.
     Route: 042
     Dates: start: 20161005, end: 20161005
  34. SOLUPRED [Suspect]
     Active Substance: PREDNISOLONE
     Indication: PRODUCT USED FOR UNKNOWN INDICATION
     Route: 065
     Dates: end: 20160930
  35. IPRATROPIUM [Suspect]
     Active Substance: IPRATROPIUM
     Indication: DYSPNOEA
     Route: 065
     Dates: start: 20160923
  36. CHLORURE DE SODIUM 0.9% VIAFLO, SOLUTION POUR PERFUSION [Suspect]
     Active Substance: SODIUM CHLORIDE
     Dosage: EVERY 12 HOURS EVERY DAY
     Route: 065
     Dates: start: 20161005, end: 20161007
  37. CELLTOP 100 MG/5 ML, SOLUTION INJECTABLE POUR PERFUSION [Suspect]
     Active Substance: ETOPOSIDE
     Indication: METASTASES TO LUNG
     Dosage: VIP COURSE 1
     Route: 065
     Dates: start: 20150515
  38. CELLTOP 100 MG/5 ML, SOLUTION INJECTABLE POUR PERFUSION [Suspect]
     Active Substance: ETOPOSIDE
     Indication: TESTICULAR MALIGNANT TERATOMA
     Dosage: VIP COURSE 2
     Route: 065
     Dates: start: 20150616
  39. CISPLATIN. [Suspect]
     Active Substance: CISPLATIN
     Indication: METASTASES TO LUNG
     Dosage: VIP COURSE 1
     Route: 065
     Dates: start: 20150515
  40. CISPLATIN. [Suspect]
     Active Substance: CISPLATIN
     Indication: TESTICULAR MALIGNANT TERATOMA
     Dosage: VIP COURSE 2
     Route: 065
     Dates: start: 20150616
  41. BIONOLYTE G5 [Suspect]
     Active Substance: DEXTROSE\POTASSIUM CHLORIDE\SODIUM CHLORIDE
     Dosage: EVERY 12 HOURS EVERY DAY
     Route: 065
     Dates: start: 20161004, end: 20161006
  42. TOPLEXIL [Concomitant]
     Active Substance: UNSPECIFIED INGREDIENT
     Indication: PRODUCT USED FOR UNKNOWN INDICATION
     Route: 065
  43. METHYLPREDNISOLONE. [Concomitant]
     Active Substance: METHYLPREDNISOLONE
     Indication: PRODUCT USED FOR UNKNOWN INDICATION
     Route: 065

REACTIONS (19)
  - Nausea [Unknown]
  - Adrenal mass [Unknown]
  - General physical health deterioration [Unknown]
  - Hyponatraemia [Unknown]
  - Formication [Recovered/Resolved]
  - Malaise [Unknown]
  - Dyspnoea [Unknown]
  - Confusional state [Recovered/Resolved]
  - Hallucination, visual [Recovered/Resolved]
  - Malignant neoplasm progression [Unknown]
  - Encephalopathy [Recovered/Resolved]
  - Metastases to lung [Unknown]
  - Testicular malignant teratoma [Unknown]
  - Neoplasm progression [Unknown]
  - Pulmonary function test decreased [Unknown]
  - Crying [Unknown]
  - Pain in extremity [Unknown]
  - Anaemia [Unknown]
  - Testicular cancer metastatic [Unknown]

NARRATIVE: CASE EVENT DATE: 201503
